FAERS Safety Report 9035533 (Version 1)
Quarter: 2013Q1

REPORT INFORMATION
  Report Type: Report from Study
  Country: US (occurrence: US)
  Receive Date: 20130129
  Receipt Date: 20130129
  Transmission Date: 20140127
  Serious: No
  Sender: FDA-Public Use
  Company Number: US-ABBOTT-12P-163-0908639-00

PATIENT
  Age: 67 Year
  Sex: Female

DRUGS (26)
  1. HUMIRA 40 MG/0.8 ML PEN [Suspect]
     Indication: PRODUCT USED FOR UNKNOWN INDICATION
     Route: 058
     Dates: start: 20120213
  2. GLYBURIDE SL [Concomitant]
     Indication: PRODUCT USED FOR UNKNOWN INDICATION
  3. METFORMIN ER [Concomitant]
     Indication: PRODUCT USED FOR UNKNOWN INDICATION
  4. JANUVIA [Concomitant]
     Indication: DIABETES MELLITUS
  5. TRANXENE [Concomitant]
     Indication: DEPRESSION
  6. TRANXENE [Concomitant]
     Indication: BIPOLAR DISORDER
  7. DEPAKOTE ER [Concomitant]
     Indication: DEPRESSION
  8. DEPAKOTE ER [Concomitant]
     Indication: BIPOLAR DISORDER
  9. EFFEXOR ER [Concomitant]
     Indication: DEPRESSION
  10. EFFEXOR ER [Concomitant]
     Indication: BIPOLAR DISORDER
  11. ZANTAC [Concomitant]
     Indication: DIVERTICULITIS
  12. ONDANSETRON [Concomitant]
     Indication: NAUSEA
  13. LASIX [Concomitant]
     Indication: PRODUCT USED FOR UNKNOWN INDICATION
  14. DIOVAN HCTZ [Concomitant]
     Indication: BLOOD PRESSURE
     Dosage: 320/25MG
  15. POTASSIUM [Concomitant]
     Indication: PRODUCT USED FOR UNKNOWN INDICATION
  16. THYROID REPLACEMENT MEDICATION [Concomitant]
     Indication: PRODUCT USED FOR UNKNOWN INDICATION
     Dosage: 75MCG ALTERNATES 88MCG
  17. LIPITOR [Concomitant]
     Indication: BLOOD CHOLESTEROL
  18. SPIRIVA [Concomitant]
     Indication: ATRIAL FIBRILLATION
     Dosage: 1 IN MORNING AS NEEDED
  19. PRED FORTE [Concomitant]
     Indication: EYE DISORDER
  20. FLEXERIL [Concomitant]
     Indication: PRODUCT USED FOR UNKNOWN INDICATION
     Dosage: 1 EVERY NIGHT AND 1 TO 3 AS NEEDED IN THE DAY
  21. LYRICA [Concomitant]
     Indication: PRODUCT USED FOR UNKNOWN INDICATION
     Dosage: 1 EVERY NIGHT AND 1 TO 3 AS NEEDED IN THE DAY.
  22. MUCINEX [Concomitant]
     Indication: HYPERSENSITIVITY
  23. AFRIN [Concomitant]
     Indication: HYPERSENSITIVITY
  24. FLONASE [Concomitant]
     Indication: HYPERSENSITIVITY
  25. OXYGEN [Concomitant]
     Indication: ATRIAL FIBRILLATION
     Dosage: 2.5LPM AT NIGHT AND AS NEEDED IN THE DAY
  26. OMNI PRED [Concomitant]
     Indication: EYE DISORDER

REACTIONS (1)
  - Blood glucose increased [Recovered/Resolved]
